FAERS Safety Report 8135486-2 (Version None)
Quarter: 2012Q1

REPORT INFORMATION
  Report Type: 
  Country: None (occurrence: None)
  Receive Date: 20120214
  Receipt Date: 20111028
  Transmission Date: 20120608
  Serious: Yes (Other)
  Sender: FDA-Public Use
  Company Number: AU-ROCHE-GNE322441

PATIENT
  Sex: Male

DRUGS (10)
  1. PLAVIX [Concomitant]
     Indication: PRODUCT USED FOR UNKNOWN INDICATION
  2. LANTUS [Concomitant]
     Indication: PRODUCT USED FOR UNKNOWN INDICATION
  3. LUCENTIS [Suspect]
     Route: 050
     Dates: start: 20110509
  4. METFORMIN HCL [Concomitant]
     Indication: PRODUCT USED FOR UNKNOWN INDICATION
  5. IKOREL [Concomitant]
     Indication: PRODUCT USED FOR UNKNOWN INDICATION
  6. MACU-VISION (AUSTRALIA) [Concomitant]
     Indication: PRODUCT USED FOR UNKNOWN INDICATION
  7. ARICEPT [Concomitant]
     Indication: PRODUCT USED FOR UNKNOWN INDICATION
  8. CARDIZEM [Concomitant]
     Indication: PRODUCT USED FOR UNKNOWN INDICATION
  9. LUCENTIS [Suspect]
     Indication: ILL-DEFINED DISORDER
     Route: 050
     Dates: start: 20100825
  10. ZOCOR [Concomitant]
     Indication: PRODUCT USED FOR UNKNOWN INDICATION

REACTIONS (8)
  - LACRIMATION INCREASED [None]
  - EYE PRURITUS [None]
  - BLOOD GLUCOSE INCREASED [None]
  - BALANCE DISORDER [None]
  - DRUG INEFFECTIVE [None]
  - VISUAL ACUITY REDUCED [None]
  - FALL [None]
  - AGITATION [None]
